FAERS Safety Report 25528026 (Version 2)
Quarter: 2025Q3

REPORT INFORMATION
  Report Type: Spontaneous
  Country: US (occurrence: US)
  Receive Date: 20250708
  Receipt Date: 20250710
  Transmission Date: 20251020
  Serious: Yes (Other)
  Sender: ADVANZ PHARMA
  Company Number: US-MLMSERVICE-20250616-PI541962-00095-1

PATIENT

DRUGS (6)
  1. HYDROXYCHLOROQUINE [Suspect]
     Active Substance: HYDROXYCHLOROQUINE
     Indication: Rheumatoid arthritis
  2. METHOTREXATE [Concomitant]
     Active Substance: METHOTREXATE
     Indication: Rheumatoid arthritis
     Dosage: 10 MG, WEEKLY
  3. LEFLUNOMIDE [Concomitant]
     Active Substance: LEFLUNOMIDE
     Indication: Rheumatoid arthritis
  4. HYDROGEN PEROXIDE [Concomitant]
     Active Substance: HYDROGEN PEROXIDE
     Indication: Rash vesicular
  5. HYDROCODONE [Concomitant]
     Active Substance: HYDROCODONE
     Indication: Analgesic therapy
  6. GABAPENTIN [Concomitant]
     Active Substance: GABAPENTIN
     Indication: Analgesic therapy

REACTIONS (9)
  - Hyperkeratosis [Recovering/Resolving]
  - Parakeratosis [Recovering/Resolving]
  - Papule [Recovering/Resolving]
  - Skin plaque [Recovering/Resolving]
  - Granulomatous dermatitis [Recovering/Resolving]
  - Lichenoid keratosis [Recovering/Resolving]
  - Rash [Recovering/Resolving]
  - Skin exfoliation [Recovering/Resolving]
  - Eczema [Recovering/Resolving]
